FAERS Safety Report 21918213 (Version 2)
Quarter: 2023Q1

REPORT INFORMATION
  Report Type: Spontaneous
  Country: US (occurrence: None)
  Receive Date: 20230127
  Receipt Date: 20230330
  Transmission Date: 20230417
  Serious: No
  Sender: FDA-Public Use
  Company Number: 2023A018546

PATIENT
  Sex: Female
  Weight: 63.5 kg

DRUGS (1)
  1. SYMBICORT [Suspect]
     Active Substance: BUDESONIDE\FORMOTEROL FUMARATE DIHYDRATE
     Indication: Asthma
     Dosage: 80/4.5 MCG, 2 INHALATIONS 2 TIMES A DAY
     Route: 055

REACTIONS (4)
  - Cataract [Unknown]
  - Device use issue [Unknown]
  - Intentional product misuse [Unknown]
  - Device malfunction [Unknown]
